FAERS Safety Report 9981308 (Version 1)
Quarter: 2014Q1

REPORT INFORMATION
  Report Type: Spontaneous
  Country: US (occurrence: None)
  Receive Date: 20140306
  Receipt Date: 20140306
  Transmission Date: 20141002
  Serious: Yes (Disabling, Other)
  Sender: FDA-Public Use
  Company Number: None

PATIENT
  Age: 64 Year
  Sex: Female
  Weight: 67.13 kg

DRUGS (3)
  1. HYDROXYCHLOROQUINE [Suspect]
     Indication: LYME DISEASE
     Dosage: 2 DOSE TWICE DAILY
  2. KETOROLAC [Suspect]
     Indication: PAIN
     Dosage: 1 PILL THREE TIMES DAILY TAKEN BY MOUTH
     Route: 048
  3. KETOROLAC [Suspect]
     Indication: LYME DISEASE
     Dosage: 1 PILL THREE TIMES DAILY TAKEN BY MOUTH
     Route: 048

REACTIONS (7)
  - Rash [None]
  - Pain in extremity [None]
  - Pain in extremity [None]
  - Product quality issue [None]
  - Pain in extremity [None]
  - Arthralgia [None]
  - Product compounding quality issue [None]
